FAERS Safety Report 8518600-6 (Version None)
Quarter: 2012Q3

REPORT INFORMATION
  Report Type: 
  Country: None (occurrence: None)
  Receive Date: 20120718
  Receipt Date: 20110803
  Transmission Date: 20120928
  Serious: Yes (Hospitalization)
  Sender: FDA-Public Use
  Company Number: US-BRISTOL-MYERS SQUIBB COMPANY-15543481

PATIENT
  Age: 59 Year
  Sex: Female

DRUGS (3)
  1. LOVENOX [Suspect]
     Indication: HYPERCOAGULATION
     Route: 058
     Dates: start: 20060101
  2. LOVENOX [Suspect]
     Indication: ATRIAL FIBRILLATION
     Route: 058
     Dates: start: 20060101
  3. COUMADIN [Suspect]
     Indication: HYPERCOAGULATION

REACTIONS (6)
  - HAEMATOMA [None]
  - INJECTION SITE HAEMATOMA [None]
  - EPISTAXIS [None]
  - THROMBOSIS [None]
  - CONTUSION [None]
  - SKIN MASS [None]
